FAERS Safety Report 12375007 (Version 1)
Quarter: 2016Q2

REPORT INFORMATION
  Report Type: Spontaneous
  Country: US (occurrence: None)
  Receive Date: 20160516
  Receipt Date: 20160516
  Transmission Date: 20160815
  Serious: Yes (Other)
  Sender: FDA-Public Use
  Company Number: None

PATIENT
  Age: 64 Year
  Sex: Male
  Weight: 113.4 kg

DRUGS (9)
  1. LISINOPRIL. [Concomitant]
     Active Substance: LISINOPRIL
  2. SYNTHROID [Concomitant]
     Active Substance: LEVOTHYROXINE SODIUM
  3. VITAMIN D3 [Concomitant]
     Active Substance: CHOLECALCIFEROL
  4. DOXICYCLINE [Concomitant]
  5. MAJOR LIQUITEARS [Suspect]
     Active Substance: POLYVINYL ALCOHOL
     Indication: DRY EYE
     Route: 031
     Dates: start: 20151101
  6. PRAVASTATIN [Concomitant]
     Active Substance: PRAVASTATIN\PRAVASTATIN SODIUM
  7. BUPROPION. [Concomitant]
     Active Substance: BUPROPION
  8. DAILY VITAMINS ^ONE A DAY^ [Concomitant]
     Active Substance: VITAMINS
  9. FISH OIL SUPPLEMENTS [Concomitant]
     Active Substance: FISH OIL

REACTIONS (3)
  - Application site pain [None]
  - Product quality issue [None]
  - Eyelid disorder [None]

NARRATIVE: CASE EVENT DATE: 20160512
